FAERS Safety Report 8988634 (Version 2)
Quarter: 2013Q1

REPORT INFORMATION
  Report Type: Spontaneous
  Country: US (occurrence: None)
  Receive Date: 20121218
  Receipt Date: 20130205
  Transmission Date: 20140127
  Serious: Yes (Hospitalization)
  Sender: FDA-Public Use
  Company Number: 2012US-004483

PATIENT
  Age: 47 Year
  Sex: Male
  Weight: 80 kg

DRUGS (14)
  1. OMONTYS [Suspect]
     Indication: NEPHROGENIC ANAEMIA
     Route: 042
     Dates: start: 20121017, end: 20121117
  2. TEGRETOL [Concomitant]
  3. PROTONIX [Concomitant]
  4. PLAVIX [Concomitant]
  5. DEPAKOTE [Concomitant]
  6. COLACE [Concomitant]
  7. PRAVACHOL [Concomitant]
  8. MIRTAZAPINE [Concomitant]
  9. MINOXIDIL [Concomitant]
  10. CLONIDINE [Concomitant]
  11. DILTIAZEM [Concomitant]
  12. NEURONTIN [Concomitant]
  13. RENAGEL [Concomitant]
  14. NORVASC [Concomitant]

REACTIONS (4)
  - Pneumonia [None]
  - Haemoglobin decreased [None]
  - Haematocrit decreased [None]
  - Cardiac failure congestive [None]
